FAERS Safety Report 4810604-X (Version None)
Quarter: 2005Q4

REPORT INFORMATION
  Report Type: 
  Country: None (occurrence: None)
  Receive Date: 20051026
  Receipt Date: 20051011
  Transmission Date: 20060501
  Serious: Yes (Hospitalization)
  Sender: FDA-Public Use
  Company Number: HQWYE977312OCT05

PATIENT
  Sex: Female

DRUGS (3)
  1. ENBREL [Suspect]
     Indication: RHEUMATOID ARTHRITIS
     Route: 058
     Dates: start: 20050708, end: 20050901
  2. METHYLPREDNISOLONE [Concomitant]
     Dosage: UNKNOWN
  3. ACETAMINOPHEN [Concomitant]
     Dosage: UNKNOWN

REACTIONS (1)
  - PLATELET COUNT DECREASED [None]
